FAERS Safety Report 10165899 (Version 2)
Quarter: 2014Q2

REPORT INFORMATION
  Report Type: Spontaneous
  Country: US (occurrence: US)
  Receive Date: 20140510
  Receipt Date: 20140510
  Transmission Date: 20141212
  Serious: No
  Sender: FDA-Public Use
  Company Number: US201210008375

PATIENT
  Age: 64 Year
  Sex: Male
  Weight: 124.71 kg

DRUGS (2)
  1. BYDUREON 2MG VIAL + SYRINGE [Suspect]
     Indication: TYPE 2 DIABETES MELLITUS
     Dosage: PRESCRIPTION #*: 6524123
     Route: 058
     Dates: start: 2012
  2. PRADAXA [Concomitant]

REACTIONS (4)
  - Injection site mass [Recovered/Resolved]
  - Injection site pruritus [Recovered/Resolved]
  - Injection site haemorrhage [Unknown]
  - Injection site extravasation [Unknown]
